FAERS Safety Report 25343411 (Version 1)
Quarter: 2025Q2

REPORT INFORMATION
  Report Type: Report from Study
  Country: CA (occurrence: CA)
  Receive Date: 20250521
  Receipt Date: 20250521
  Transmission Date: 20250717
  Serious: Yes (Hospitalization)
  Sender: EISAI
  Company Number: CA-Eisai-EC-2025-189665

PATIENT
  Age: 48 Year
  Sex: Male

DRUGS (2)
  1. LENVIMA [Suspect]
     Active Substance: LENVATINIB
     Indication: Gastrointestinal stromal tumour
     Dates: start: 20250305, end: 2025
  2. LENVIMA [Suspect]
     Active Substance: LENVATINIB
     Dosage: 20MG ONE DAY AND 10MG NEXT DAY (ALTERNATING)
     Dates: start: 2025, end: 202505

REACTIONS (1)
  - Myocardial infarction [Unknown]

NARRATIVE: CASE EVENT DATE: 20250510
